FAERS Safety Report 7782081-0 (Version None)
Quarter: 2011Q3

REPORT INFORMATION
  Report Type: 
  Country: None (occurrence: None)
  Receive Date: 20110927
  Receipt Date: 20110915
  Transmission Date: 20111222
  Serious: Yes (Other)
  Sender: FDA-Public Use
  Company Number: US-ELI_LILLY_AND_COMPANY-US201109004719

PATIENT
  Sex: Male

DRUGS (2)
  1. LANTUS [Concomitant]
     Dosage: 15 U, QD
  2. HUMALOG [Suspect]
     Indication: DIABETES MELLITUS
     Dosage: UNK, UNKNOWN
     Dates: start: 20101201

REACTIONS (2)
  - MYOCARDIAL INFARCTION [None]
  - NEUROPATHY PERIPHERAL [None]
